FAERS Safety Report 10333460 (Version 1)
Quarter: 2014Q3

REPORT INFORMATION
  Report Type: Spontaneous
  Country: US (occurrence: US)
  Receive Date: 20140722
  Receipt Date: 20140722
  Transmission Date: 20150326
  Serious: No
  Sender: FDA-Public Use
  Company Number: US-SA-2014SA029767

PATIENT
  Age: 85 Year
  Sex: Female

DRUGS (1)
  1. AMBIEN [Suspect]
     Active Substance: ZOLPIDEM TARTRATE
     Indication: SLEEP DISORDER
     Dosage: TAKEN FROM: MORE THAN 1 YEAR
     Route: 065

REACTIONS (3)
  - Breast discolouration [Unknown]
  - Vulvovaginal swelling [Unknown]
  - Vulvovaginal erythema [Unknown]
